FAERS Safety Report 4300117-6 (Version None)
Quarter: 2004Q1

REPORT INFORMATION
  Report Type: 
  Country: None (occurrence: None)
  Receive Date: 20040218
  Receipt Date: 20040205
  Transmission Date: 20041129
  Serious: Yes (Death, Hospitalization)
  Sender: FDA-Public Use
  Company Number: SE-JNJFOC-20040102891

PATIENT
  Age: 59 Year
  Sex: Male

DRUGS (7)
  1. RISPERDAL [Suspect]
     Indication: PARANOIA
     Dosage: 0.5 MG, 2 IN 1 DAY, ORAL
     Route: 048
     Dates: end: 20031209
  2. RISPERDAL [Suspect]
     Indication: PARANOIA
     Dosage: 0.5 MG, 2 IN 1 DAY, ORAL
     Route: 048
     Dates: start: 20031202
  3. INSULATARD NPH HUMAN [Concomitant]
  4. PREDNISOLONE [Concomitant]
  5. CAPOTEN [Concomitant]
  6. SANDIMMUNE [Concomitant]
  7. TROMBYL (ACETYLSLICYLIC ACID) [Concomitant]

REACTIONS (5)
  - CARDIAC FAILURE [None]
  - CHEYNE-STOKES RESPIRATION [None]
  - DEPRESSED LEVEL OF CONSCIOUSNESS [None]
  - PULMONARY OEDEMA [None]
  - SHOCK [None]
